FAERS Safety Report 22269597 (Version 2)
Quarter: 2023Q2

REPORT INFORMATION
  Report Type: Spontaneous
  Country: US (occurrence: US)
  Receive Date: 20230501
  Receipt Date: 20230622
  Transmission Date: 20230721
  Serious: No
  Sender: FDA-Public Use
  Company Number: US-PFIZER INC-202300169018

PATIENT
  Age: 10 Year
  Sex: Male
  Weight: 34.47 kg

DRUGS (2)
  1. SOMATROPIN [Suspect]
     Active Substance: SOMATROPIN
     Indication: Hypopituitarism
     Dosage: UNK
  2. SOMATROPIN [Suspect]
     Active Substance: SOMATROPIN
     Indication: Hypoparathyroidism

REACTIONS (2)
  - Syringe issue [Unknown]
  - Device defective [Unknown]
